FAERS Safety Report 25743907 (Version 1)
Quarter: 2025Q3

REPORT INFORMATION
  Report Type: Report from Study
  Country: GB (occurrence: GB)
  Receive Date: 20250831
  Receipt Date: 20250831
  Transmission Date: 20251020
  Serious: Yes (Other)
  Sender: ABBVIE
  Company Number: GB-ABBVIE-6436502

PATIENT
  Sex: Female

DRUGS (1)
  1. RINVOQ [Suspect]
     Active Substance: UPADACITINIB
     Indication: Psoriatic arthropathy
     Dosage: RINVOQ 15MG (28 TABLET 4 X 7 TABLETS)
     Route: 048

REACTIONS (3)
  - Stent placement [Unknown]
  - Device dislocation [Unknown]
  - General physical health deterioration [Unknown]
